FAERS Safety Report 4835668-9 (Version None)
Quarter: 2005Q4

REPORT INFORMATION
  Report Type: 
  Country: None (occurrence: None)
  Receive Date: 20051123
  Receipt Date: 20040204
  Transmission Date: 20060501
  Serious: No
  Sender: FDA-Public Use
  Company Number: US-BRISTOL-MYERS SQUIBB COMPANY-12496030

PATIENT
  Age: 77 Year
  Sex: Male

DRUGS (2)
  1. AMPHOTERICIN B [Suspect]
     Indication: FUNGAL INFECTION
     Dosage: TOTAL 200 ML OVER FOUR HOURS
     Route: 042
     Dates: start: 20040102, end: 20040102
  2. BENADRYL [Concomitant]
     Route: 042
     Dates: start: 20040102, end: 20040102

REACTIONS (2)
  - EXTRAVASATION [None]
  - INJECTION SITE PAIN [None]
